FAERS Safety Report 4891233-9 (Version None)
Quarter: 2006Q1

REPORT INFORMATION
  Report Type: 
  Country: None (occurrence: None)
  Receive Date: 20060120
  Receipt Date: 20060116
  Transmission Date: 20060701
  Serious: Yes (Hospitalization, Other)
  Sender: FDA-Public Use
  Company Number: 200610080GDS

PATIENT
  Age: 61 Year
  Sex: Male

DRUGS (4)
  1. ASPIRIN [Suspect]
     Indication: THROMBOSIS PROPHYLAXIS
     Dosage: 100 MG, TOTAL DAILY, UNK
  2. TICLOPIDINE HCL [Suspect]
     Indication: THROMBOSIS PROPHYLAXIS
     Dosage: 200 MG, TOTAL DAILY, UNK
  3. HEPARIN [Suspect]
     Indication: THROMBOSIS PROPHYLAXIS
  4. ARGATROBAN [Suspect]
     Indication: THROMBOSIS PROPHYLAXIS

REACTIONS (5)
  - BRAIN OEDEMA [None]
  - CEREBRAL ARTERY STENOSIS [None]
  - HAEMORRHAGIC TRANSFORMATION STROKE [None]
  - ISCHAEMIC CEREBRAL INFARCTION [None]
  - THERAPY NON-RESPONDER [None]
